FAERS Safety Report 5794588-6 (Version None)
Quarter: 2008Q2

REPORT INFORMATION
  Report Type: 
  Country: None (occurrence: None)
  Receive Date: 20080625
  Receipt Date: 20080616
  Transmission Date: 20081010
  Serious: Yes (Hospitalization, Other)
  Sender: FDA-Public Use
  Company Number: CERZ-1000242

PATIENT
  Age: 9 Year
  Sex: Female
  Weight: 24 kg

DRUGS (1)
  1. CEREZYME [Suspect]
     Indication: GAUCHER'S DISEASE
     Dosage: 57 U/KG, INTRAVENOUS
     Route: 042
     Dates: start: 20050125, end: 20080506

REACTIONS (4)
  - HEADACHE [None]
  - HYPOKALAEMIA [None]
  - POST STREPTOCOCCAL GLOMERULONEPHRITIS [None]
  - PYELONEPHRITIS [None]
